FAERS Safety Report 18406364 (Version 2)
Quarter: 2020Q4

REPORT INFORMATION
  Report Type: Spontaneous
  Country: DE (occurrence: DE)
  Receive Date: 20201020
  Receipt Date: 20201103
  Transmission Date: 20210114
  Serious: Yes (Hospitalization)
  Sender: FDA-Public Use
  Company Number: NVSC2020DE275277

PATIENT
  Age: 59 Year
  Sex: Male
  Weight: 57 kg

DRUGS (3)
  1. ATEZOLIZUMAB. [Suspect]
     Active Substance: ATEZOLIZUMAB
     Indication: NON-SMALL CELL LUNG CANCER
     Dosage: 1200 MG, LAST DOSE PRIOR TO EVENT
     Route: 042
     Dates: start: 20200928
  2. PACLITAXEL. [Suspect]
     Active Substance: PACLITAXEL
     Indication: NON-SMALL CELL LUNG CANCER
     Dosage: 100 MG/M2, QW (DATE LAST DOSE TAKEN PRIOR TO EVENT: 28 SEP 2020)
     Route: 042
     Dates: start: 20200928
  3. CARBOPLATIN. [Suspect]
     Active Substance: CARBOPLATIN
     Indication: NON-SMALL CELL LUNG CANCER
     Dosage: DOSE: 6 MG/MIN*ML LAST DOSE PRIOR TO EVENT ONSET: 28/SEP/2020
     Route: 042
     Dates: start: 20200928

REACTIONS (2)
  - Acute kidney injury [Recovered/Resolved]
  - Pneumonitis [Recovered/Resolved]

NARRATIVE: CASE EVENT DATE: 20200930
